FAERS Safety Report 8024816-8 (Version None)
Quarter: 2012Q1

REPORT INFORMATION
  Report Type: 
  Country: None (occurrence: None)
  Receive Date: 20120105
  Receipt Date: 20111227
  Transmission Date: 20120608
  Serious: Yes (Disabling)
  Sender: FDA-Public Use
  Company Number: JP-JNJFOC-20110310540

PATIENT
  Sex: Male
  Weight: 43 kg

DRUGS (8)
  1. ISENTRESS [Concomitant]
     Indication: HIV INFECTION
     Route: 048
     Dates: start: 20091210, end: 20091214
  2. VIBRAMYCIN [Concomitant]
     Indication: SYPHILIS
     Route: 048
     Dates: start: 20091120, end: 20091204
  3. NORVIR [Suspect]
     Indication: HIV INFECTION
     Route: 048
     Dates: start: 20091125, end: 20100203
  4. ATOVAQUONE [Concomitant]
     Indication: PNEUMOCYSTIS JIROVECI INFECTION
     Route: 065
     Dates: start: 20091218, end: 20100203
  5. INTELENCE [Suspect]
     Indication: HIV INFECTION
     Route: 048
     Dates: start: 20091214, end: 20100203
  6. REYATAZ [Suspect]
     Indication: HIV INFECTION
     Route: 048
     Dates: start: 20091125, end: 20100203
  7. EPIVIR [Concomitant]
     Indication: HIV INFECTION
     Route: 048
     Dates: start: 20091125, end: 20091210
  8. ZERIT [Concomitant]
     Indication: HIV INFECTION
     Route: 048
     Dates: start: 20091125, end: 20091210

REACTIONS (1)
  - UVEITIS [None]
